FAERS Safety Report 25003616 (Version 4)
Quarter: 2025Q2

REPORT INFORMATION
  Report Type: Spontaneous
  Country: US (occurrence: US)
  Receive Date: 20250224
  Receipt Date: 20250422
  Transmission Date: 20250716
  Serious: Yes (Other)
  Sender: PFIZER
  Company Number: US-PFIZER INC-202500038187

PATIENT
  Age: 68 Year
  Sex: Female
  Weight: 65.77 kg

DRUGS (1)
  1. ESTRING [Suspect]
     Active Substance: ESTRADIOL
     Indication: Hormone replacement therapy
     Route: 067
     Dates: start: 20241126, end: 20250201

REACTIONS (3)
  - Discomfort [Recovering/Resolving]
  - Device difficult to use [Unknown]
  - Patient-device incompatibility [Unknown]

NARRATIVE: CASE EVENT DATE: 20250201
